FAERS Safety Report 14985067 (Version 1)
Quarter: 2018Q2

REPORT INFORMATION
  Report Type: Spontaneous
  Country: CN (occurrence: CN)
  Receive Date: 20180607
  Receipt Date: 20180607
  Transmission Date: 20180711
  Serious: Yes (Other)
  Sender: FDA-Public Use
  Company Number: CN-FRESENIUS KABI-FK201806492

PATIENT
  Age: 79 Year
  Sex: Male

DRUGS (2)
  1. COMPOUND AMINO ACID INJECTION (18AA-V) [Concomitant]
     Active Substance: AMINO ACIDS
     Indication: DECREASED APPETITE
     Dosage: 250ML,QD
     Route: 041
     Dates: start: 20171108, end: 20171109
  2. LIPOVENOES MCT 20% [Suspect]
     Active Substance: EGG PHOSPHOLIPIDS\GLYCERIN\MEDIUM-CHAIN TRIGLYCERIDES\SOYBEAN OIL
     Indication: DECREASED APPETITE
     Dosage: 250ML, QD
     Route: 041
     Dates: start: 20171108, end: 20171115

REACTIONS (2)
  - Chills [Recovered/Resolved]
  - Hyperpyrexia [Recovered/Resolved]

NARRATIVE: CASE EVENT DATE: 20171108
